FAERS Safety Report 7532038-X (Version None)
Quarter: 2011Q2

REPORT INFORMATION
  Report Type: 
  Country: None (occurrence: None)
  Receive Date: 20110608
  Receipt Date: 20110605
  Transmission Date: 20111010
  Serious: No
  Sender: FDA-Public Use
  Company Number: US-TEVA-284011USA

PATIENT
  Sex: Female
  Weight: 59.02 kg

DRUGS (4)
  1. PAXIL [Concomitant]
     Indication: DEPRESSION
     Dates: start: 20100101
  2. PLAN B ONE-STEP [Suspect]
     Indication: POST COITAL CONTRACEPTION
     Dosage: 1.5 MILLIGRAM;
     Route: 048
     Dates: start: 20110525, end: 20110525
  3. BUSPAR [Concomitant]
     Indication: DEPRESSION
     Dates: start: 20100101
  4. TRAZODONE HCL [Concomitant]
     Indication: DEPRESSION
     Dates: start: 20100101

REACTIONS (6)
  - DIZZINESS [None]
  - NIPPLE DISORDER [None]
  - FATIGUE [None]
  - PELVIC PAIN [None]
  - VAGINAL DISCHARGE [None]
  - NAUSEA [None]
